FAERS Safety Report 16660624 (Version 1)
Quarter: 2019Q3

REPORT INFORMATION
  Report Type: Report from Study
  Country: US (occurrence: US)
  Receive Date: 20190802
  Receipt Date: 20190802
  Transmission Date: 20191004
  Serious: Yes (Hospitalization, Other)
  Sender: FDA-Public Use
  Company Number: US-JNJFOC-20190739560

PATIENT

DRUGS (1)
  1. DURAGESIC [Suspect]
     Active Substance: FENTANYL
     Indication: PAIN
     Route: 065

REACTIONS (6)
  - Pneumonia [Unknown]
  - Bacteraemia [Unknown]
  - Cellulitis [Unknown]
  - Pyelonephritis [Unknown]
  - Arthritis bacterial [Unknown]
  - Infection [Unknown]
